FAERS Safety Report 6735525-7 (Version None)
Quarter: 2010Q2

REPORT INFORMATION
  Report Type: 
  Country: None (occurrence: None)
  Receive Date: 20100521
  Receipt Date: 20100511
  Transmission Date: 20101027
  Serious: Yes (Other)
  Sender: FDA-Public Use
  Company Number: US-ALEXION-A201000491

PATIENT
  Sex: Female

DRUGS (2)
  1. SOLIRIS [Suspect]
     Indication: PAROXYSMAL NOCTURNAL HAEMOGLOBINURIA
     Dosage: 600 MG, QWKX4
     Route: 042
     Dates: start: 20091021, end: 20091111
  2. SOLIRIS [Suspect]
     Dosage: 900 MG, Q14D
     Route: 042
     Dates: start: 20091118

REACTIONS (1)
  - TRANSIENT ISCHAEMIC ATTACK [None]
